FAERS Safety Report 19657142 (Version 3)
Quarter: 2021Q4

REPORT INFORMATION
  Report Type: Spontaneous
  Country: GB (occurrence: GB)
  Receive Date: 20210804
  Receipt Date: 20211101
  Transmission Date: 20220303
  Serious: No
  Sender: FDA-Public Use
  Company Number: NVSC2021GB164036

PATIENT
  Weight: 47.6 kg

DRUGS (4)
  1. FLUDARABINE [Suspect]
     Active Substance: FLUDARABINE PHOSPHATE
     Indication: Product used for unknown indication
     Dosage: 170 MILLIGRAM, QD, 42.5 MG, 4X/DAY
     Route: 065
     Dates: start: 20161129, end: 20161203
  2. CYTARABINE [Suspect]
     Active Substance: CYTARABINE
     Indication: Product used for unknown indication
     Dosage: 11200 MILLIGRAM, QD, 2800 MG, 4X/DAY
     Route: 042
     Dates: start: 20161129, end: 20161203
  3. IDARUBICIN HYDROCHLORIDE [Suspect]
     Active Substance: IDARUBICIN HYDROCHLORIDE
     Indication: Product used for unknown indication
     Dosage: 44 MILLIGRAM, QD, 11 MG, 4X/DAY
     Route: 042
     Dates: start: 20161201, end: 20161203
  4. NORETHINDRONE [Concomitant]
     Active Substance: NORETHINDRONE
     Indication: Product used for unknown indication
     Dosage: 15 MILLIGRAM, QD, 5 MG, 3X/DAY
     Route: 065
     Dates: start: 20161019

REACTIONS (2)
  - Febrile neutropenia [Recovered/Resolved]
  - Periorbital cellulitis [Recovered/Resolved]

NARRATIVE: CASE EVENT DATE: 20161216
